FAERS Safety Report 16879439 (Version 1)
Quarter: 2019Q4

REPORT INFORMATION
  Report Type: Report from Study
  Country: DE (occurrence: DE)
  Receive Date: 20191003
  Receipt Date: 20191003
  Transmission Date: 20200122
  Serious: Yes (Other)
  Sender: FDA-Public Use
  Company Number: DE-TEVA-2019-DE-1116030

PATIENT
  Age: 56 Year
  Sex: Female
  Weight: 55 kg

DRUGS (22)
  1. CAPECITABINE. [Suspect]
     Active Substance: CAPECITABINE
     Indication: COLORECTAL CANCER
     Dosage: DAILY DOSE: 3000 MG MILLGRAM(S) EVERY DAYS/ 93 DAYS
     Route: 048
     Dates: start: 20140909, end: 20141211
  2. OXALIPLATIN. [Concomitant]
     Active Substance: OXALIPLATIN
     Dosage: 140MG/ 2 WEEKS
     Route: 042
     Dates: start: 20140325
  3. OXALIPLATIN. [Concomitant]
     Active Substance: OXALIPLATIN
     Dosage: 100MG/ 2 WEEKS
     Route: 042
     Dates: start: 20140604, end: 20140604
  4. BEVACIZUMAB. [Suspect]
     Active Substance: BEVACIZUMAB
     Indication: COLORECTAL CANCER METASTATIC
     Dosage: 390MG
     Route: 042
     Dates: start: 20141128
  5. OXALIPLATIN. [Concomitant]
     Active Substance: OXALIPLATIN
     Dosage: 70MG/ 14 DAYS
     Route: 042
     Dates: start: 20140618, end: 20140702
  6. HYDROCHLOROTHIAZIDE/TRIAMTERENE [Concomitant]
     Active Substance: HYDROCHLOROTHIAZIDE\TRIAMTERENE
     Indication: HYPERTENSION
     Route: 065
     Dates: start: 20140116
  7. FOLINIC ACID [Concomitant]
     Active Substance: LEUCOVORIN
     Dosage: 300MG/ 2WEEKS
     Route: 042
     Dates: start: 20140311
  8. 5-FLUOROURACIL [Concomitant]
     Active Substance: FLUOROURACIL
     Indication: COLORECTAL CANCER
     Dosage: 310MG/ 2 WEEKS
     Route: 040
     Dates: start: 20140408, end: 20140408
  9. 5-FLUOROURACIL [Concomitant]
     Active Substance: FLUOROURACIL
     Route: 040
     Dates: start: 20140423, end: 20140814
  10. 5-FLUOROURACIL [Concomitant]
     Active Substance: FLUOROURACIL
     Dosage: 950MG/ 2 WEEKS/ 156 DAYS
     Route: 041
     Dates: start: 20140311, end: 20140814
  11. OXALIPLATIN. [Concomitant]
     Active Substance: OXALIPLATIN
     Dosage: 130MG/ 2 WEEKS
     Route: 042
     Dates: start: 20140311
  12. AMLODIPIN [Concomitant]
     Active Substance: AMLODIPINE BESYLATE
     Indication: HYPERTENSION
     Route: 065
     Dates: start: 20140116
  13. ENALAPRIL MALEATE. [Concomitant]
     Active Substance: ENALAPRIL MALEATE
     Indication: HYPERTENSION
     Route: 065
     Dates: start: 20140116
  14. 5-FLUOROURACIL [Concomitant]
     Active Substance: FLUOROURACIL
     Dosage: 620MG/ 2 WEEKS
     Route: 040
     Dates: start: 20140311
  15. FOLINIC ACID [Concomitant]
     Active Substance: LEUCOVORIN
     Dosage: 350MG/ 2 WEEKS/ 396 DAYS
     Route: 042
     Dates: start: 20140325, end: 20150425
  16. OXALIPLATIN. [Concomitant]
     Active Substance: OXALIPLATIN
     Indication: COLORECTAL CANCER
     Dosage: 110MG/ 2 WEEKS/ 14 DAYS
     Route: 042
     Dates: start: 20140507, end: 20140521
  17. OXALIPLATIN. [Concomitant]
     Active Substance: OXALIPLATIN
     Dosage: 60MG/ 2 WEEKS/ 209 DAYS
     Route: 042
     Dates: start: 20140116, end: 20140813
  18. 5-FLUOROURACIL [Concomitant]
     Active Substance: FLUOROURACIL
     Dosage: 610MG/ 2 WEEKS
     Route: 040
     Dates: start: 20140325, end: 20140325
  19. FOLINIC ACID [Concomitant]
     Active Substance: LEUCOVORIN
     Indication: COLORECTAL CANCER
     Dosage: 300MG/ 2 WEEKS / 99 DAYS
     Route: 042
     Dates: start: 20140507, end: 20140814
  20. METOPROLOLTARTRAT [Concomitant]
     Indication: HYPERTENSION
     Route: 065
     Dates: start: 20140116
  21. BEVACIZUMAB. [Suspect]
     Active Substance: BEVACIZUMAB
     Route: 042
     Dates: start: 20140311
  22. OXALIPLATIN. [Concomitant]
     Active Substance: OXALIPLATIN
     Dosage: 100MG/ 2 WEEKS
     Route: 042
     Dates: start: 20140423

REACTIONS (2)
  - Stoma site haemorrhage [Recovered/Resolved]
  - Iron deficiency anaemia [Unknown]

NARRATIVE: CASE EVENT DATE: 20141111
